FAERS Safety Report 8820873 (Version 1)
Quarter: 2012Q4

REPORT INFORMATION
  Report Type: 
  Country: US (occurrence: US)
  Receive Date: 20121002
  Receipt Date: 20121002
  Transmission Date: 20130627
  Serious: Yes (Death)
  Sender: FDA-Public Use
  Company Number: US-ROCHE-1137609

PATIENT
  Age: 61 Year
  Sex: Female

DRUGS (11)
  1. PEGASYS [Suspect]
     Indication: HEPATITIS C
     Route: 065
     Dates: start: 20120719
  2. MULTIPLE VITAMINS [Concomitant]
  3. XANAX [Concomitant]
  4. COGENTIN [Concomitant]
  5. HYDROCHLOROTHIAZIDE [Concomitant]
  6. IMODIUM [Concomitant]
  7. SPIRIVA [Concomitant]
  8. LORTAB [Concomitant]
  9. IBUPROFEN [Concomitant]
  10. INVEGA [Concomitant]
  11. GABAPENTIN [Concomitant]

REACTIONS (1)
  - Sudden death [Fatal]
